FAERS Safety Report 15022260 (Version 2)
Quarter: 2018Q2

REPORT INFORMATION
  Report Type: Report from Study
  Country: None (occurrence: SE)
  Receive Date: 20180618
  Receipt Date: 20180621
  Transmission Date: 20180711
  Serious: Yes (Death)
  Sender: FDA-Public Use
  Company Number: SE-ABBVIE-18K-150-2391417-00

PATIENT
  Sex: Male
  Weight: 92 kg

DRUGS (5)
  1. DUODOPA [Suspect]
     Active Substance: CARBIDOPA\LEVODOPA
     Route: 050
     Dates: start: 20111017, end: 20180613
  2. FLORINEF ACETATE [Concomitant]
     Active Substance: FLUDROCORTISONE ACETATE
     Indication: HYPERTENSION
  3. ORSTANORM [Concomitant]
     Indication: HYPERTENSION
  4. AZILECT [Concomitant]
     Active Substance: RASAGILINE MESYLATE
     Indication: FATIGUE
  5. DUODOPA [Suspect]
     Active Substance: CARBIDOPA\LEVODOPA
     Indication: PARKINSON^S DISEASE
     Route: 050
     Dates: start: 20110613, end: 2011

REACTIONS (2)
  - Depressed mood [Fatal]
  - Liver abscess [Fatal]
